FAERS Safety Report 5762314-2 (Version None)
Quarter: 2008Q2

REPORT INFORMATION
  Report Type: 
  Country: None (occurrence: None)
  Receive Date: 20080609
  Receipt Date: 20080529
  Transmission Date: 20081010
  Serious: Yes (Other)
  Sender: FDA-Public Use
  Company Number: PHHY2008DE09232

PATIENT
  Sex: Female
  Weight: 68 kg

DRUGS (3)
  1. ZOMETA [Suspect]
     Dosage: 4 MG EVERY 4 WEEKS
     Route: 042
     Dates: start: 20050221, end: 20071206
  2. ANASTROZOLE [Concomitant]
     Indication: BREAST CANCER
     Dosage: UNK
     Dates: start: 20050321, end: 20060425
  3. AROMASIN [Concomitant]
     Indication: BREAST CANCER
     Dosage: UNK
     Dates: start: 20060329

REACTIONS (3)
  - OSTEONECROSIS [None]
  - OSTEOPOROTIC FRACTURE [None]
  - TOOTH LOSS [None]
